FAERS Safety Report 4703716-2 (Version None)
Quarter: 2005Q2

REPORT INFORMATION
  Report Type: 
  Country: None (occurrence: None)
  Receive Date: 20050628
  Receipt Date: 20050609
  Transmission Date: 20051028
  Serious: Yes (Death, Other)
  Sender: FDA-Public Use
  Company Number: USA0506100157

PATIENT
  Sex: Female

DRUGS (1)
  1. FORTEO [Suspect]

REACTIONS (3)
  - BILE DUCT OBSTRUCTION [None]
  - HEPATIC FAILURE [None]
  - NEOPLASM [None]
